FAERS Safety Report 6398376-1 (Version None)
Quarter: 2009Q4

REPORT INFORMATION
  Report Type: 
  Country: None (occurrence: None)
  Receive Date: 20091013
  Receipt Date: 20091008
  Transmission Date: 20100525
  Serious: Yes (Hospitalization, Other)
  Sender: FDA-Public Use
  Company Number: US-B.I. PHARMACEUTICALS,INC./RIDGEFIELD-2008-BP-17082BP

PATIENT
  Sex: Female

DRUGS (6)
  1. CATAPRES-TTS-1 [Suspect]
     Indication: CARDIAC DISORDER
     Dosage: 0.2 MG
  2. CATAPRES-TTS-1 [Suspect]
     Indication: HYPERTENSION
  3. CATAPRES-TTS-1 [Suspect]
     Indication: LYME DISEASE
  4. ALBUTEROL [Concomitant]
  5. PREDNISONE [Concomitant]
  6. BENADRYL [Concomitant]

REACTIONS (13)
  - ABDOMINAL PAIN [None]
  - ACCIDENTAL OVERDOSE [None]
  - ANTICHOLINERGIC SYNDROME [None]
  - BALANCE DISORDER [None]
  - CHEST PAIN [None]
  - DIZZINESS [None]
  - DRUG DISPENSING ERROR [None]
  - FACE OEDEMA [None]
  - GAIT DISTURBANCE [None]
  - NAUSEA [None]
  - PALPITATIONS [None]
  - RASH [None]
  - VISION BLURRED [None]
